FAERS Safety Report 20362391 (Version 1)
Quarter: 2022Q1

REPORT INFORMATION
  Report Type: Spontaneous
  Country: US (occurrence: None)
  Receive Date: 20220120
  Receipt Date: 20220120
  Transmission Date: 20220423
  Serious: No
  Sender: FDA-Public Use
  Company Number: None

PATIENT
  Age: 29 Year
  Sex: Female
  Weight: 72 kg

DRUGS (14)
  1. DUPIXENT [Suspect]
     Active Substance: DUPILUMAB
     Indication: Dermatitis atopic
     Dates: start: 20211203
  2. NUVARING [Concomitant]
     Active Substance: ETHINYL ESTRADIOL\ETONOGESTREL
  3. ADDERALL EXTENDED RELEASE [Concomitant]
  4. MONTELUKAST [Concomitant]
     Active Substance: MONTELUKAST SODIUM
  5. TEMAZEPAM [Concomitant]
     Active Substance: TEMAZEPAM
  6. ZYRTEC [Concomitant]
     Active Substance: CETIRIZINE HYDROCHLORIDE
  7. GARLIC [Concomitant]
     Active Substance: GARLIC
  8. FISH OIL [Concomitant]
     Active Substance: FISH OIL
  9. VITAMIN D [Concomitant]
     Active Substance: VITAMIN D NOS
  10. MAGNESIUM [Concomitant]
     Active Substance: MAGNESIUM
  11. HAIR,SKIN,AND NAIL VITAMINS [Concomitant]
  12. ZINC [Concomitant]
     Active Substance: ZINC
  13. COLLAGEN PEPTIDES [Concomitant]
  14. PHYSICIAN CHOICE probiotics [Concomitant]

REACTIONS (4)
  - Flushing [None]
  - Feeling hot [None]
  - Palpitations [None]
  - Alcohol interaction [None]

NARRATIVE: CASE EVENT DATE: 20220119
